FAERS Safety Report 8063154-4 (Version None)
Quarter: 2012Q1

REPORT INFORMATION
  Report Type: 
  Country: None (occurrence: None)
  Receive Date: 20120123
  Receipt Date: 20120110
  Transmission Date: 20120608
  Serious: Yes (Hospitalization)
  Sender: FDA-Public Use
  Company Number: GB-ELI_LILLY_AND_COMPANY-GB201201000807

PATIENT
  Sex: Male

DRUGS (12)
  1. PEMETREXED [Suspect]
     Indication: NON-SMALL CELL LUNG CANCER
     Dosage: 500 MG/M2, UNKNOWN
     Route: 042
     Dates: start: 20111209
  2. OXETHAZAINE [Concomitant]
     Dosage: 10 MG, QD
     Route: 048
     Dates: start: 20120101
  3. DICLOFENAC [Concomitant]
     Indication: PAIN
     Dosage: 50 MG, TID
     Route: 047
  4. FOLIC ACID [Concomitant]
     Indication: VITAMIN SUPPLEMENTATION
     Dosage: 400 UG, QD
     Route: 048
  5. ACETAMINOPHEN [Concomitant]
     Indication: PAIN
     Dosage: 1 G, QID
     Route: 048
  6. TAXOL [Suspect]
     Indication: NON-SMALL CELL LUNG CANCER
     Dosage: 175 MG/M2, UNKNOWN
     Route: 042
     Dates: start: 20111209
  7. MORPHINE SULFATE [Concomitant]
     Indication: PAIN
     Dosage: 20 MG, BID
     Route: 048
  8. LANSOPRAZOLE [Concomitant]
     Indication: PROPHYLAXIS AGAINST GASTROINTESTINAL ULCER
     Dosage: 30 MG, UNK
     Route: 048
     Dates: start: 20120103
  9. VITAMIN B COMPLEX CAP [Concomitant]
     Indication: VITAMIN SUPPLEMENTATION
     Dosage: UNK, QD
     Route: 048
     Dates: start: 20120105
  10. THIAMINE HCL [Concomitant]
     Indication: VITAMIN SUPPLEMENTATION
     Dosage: 100 MG, QD
     Route: 048
     Dates: start: 20120105
  11. METOCLOPRAMIDE [Concomitant]
     Indication: MALAISE
     Dosage: 10 - 20MG THREE TIMES DAILY
     Route: 048
  12. DEXAMETHASONE TAB [Concomitant]
     Dosage: 4 MG, BID
     Route: 048
     Dates: start: 20111230

REACTIONS (4)
  - EMPYEMA [None]
  - NEUTROPENIC SEPSIS [None]
  - ANAEMIA [None]
  - LOWER RESPIRATORY TRACT INFECTION [None]
